FAERS Safety Report 11430342 (Version 1)
Quarter: 2015Q3

REPORT INFORMATION
  Report Type: Spontaneous
  Country: US (occurrence: US)
  Receive Date: 20150828
  Receipt Date: 20150828
  Transmission Date: 20151125
  Serious: No
  Sender: FDA-Public Use
  Company Number: US-GE HEALTHCARE MEDICAL DIAGNOSTICS-DATS-PR-1401S-0007

PATIENT

DRUGS (2)
  1. DATSCAN [Suspect]
     Active Substance: IODINE\IOFLUPANE I-123
     Indication: PARKINSON^S DISEASE
     Dosage: DOSE NOT REPORTED
     Route: 065
  2. DATSCAN [Suspect]
     Active Substance: IODINE\IOFLUPANE I-123
     Indication: DIAGNOSTIC PROCEDURE

REACTIONS (1)
  - Radioisotope scan abnormal [Recovered/Resolved]
